FAERS Safety Report 8331541-2 (Version None)
Quarter: 2012Q2

REPORT INFORMATION
  Report Type: 
  Country: None (occurrence: None)
  Receive Date: 20120502
  Receipt Date: 20120418
  Transmission Date: 20120825
  Serious: Yes (Other)
  Sender: FDA-Public Use
  Company Number: US-FRI-1000030151

PATIENT

DRUGS (1)
  1. CITALOPRAM [Suspect]
     Dosage: 80 MG

REACTIONS (3)
  - ACIDOSIS [None]
  - OVERDOSE [None]
  - OFF LABEL USE [None]
